FAERS Safety Report 6265859-4 (Version None)
Quarter: 2009Q3

REPORT INFORMATION
  Report Type: 
  Country: None (occurrence: None)
  Receive Date: 20090709
  Receipt Date: 20090709
  Transmission Date: 20100115
  Serious: No
  Sender: FDA-Public Use
  Company Number: None

PATIENT
  Age: 7 Month
  Sex: Male
  Weight: 9.0719 kg

DRUGS (1)
  1. CEFDINIR [Suspect]
     Indication: EAR INFECTION
     Dosage: 5ML ONCE DAILY PO DAYS
     Route: 048
     Dates: start: 20090626, end: 20090704

REACTIONS (2)
  - ANGER [None]
  - CRYING [None]
